FAERS Safety Report 13963058 (Version 1)
Quarter: 2017Q3

REPORT INFORMATION
  Report Type: Spontaneous
  Country: US (occurrence: US)
  Receive Date: 20170913
  Receipt Date: 20170913
  Transmission Date: 20171128
  Serious: No
  Sender: FDA-Public Use
  Company Number: US-PFIZER INC-2017394640

PATIENT
  Age: 55 Year
  Sex: Female
  Weight: 69.84 kg

DRUGS (1)
  1. PROMETHAZINE HCL [Suspect]
     Active Substance: PROMETHAZINE HYDROCHLORIDE
     Dosage: 50 MG, UNK, (SUPPOSED TO TAKE 2 OF THEM  EVERY 6 HOURS, BUT HAS BEEN TAKING THEM EVERY 2-4 HOURS)
     Route: 048

REACTIONS (2)
  - Malaise [Unknown]
  - Product use issue [Unknown]
